FAERS Safety Report 6727366-1 (Version None)
Quarter: 2010Q2

REPORT INFORMATION
  Report Type: 
  Country: None (occurrence: None)
  Receive Date: 20100517
  Receipt Date: 20100504
  Transmission Date: 20101027
  Serious: Yes (Hospitalization, Other)
  Sender: FDA-Public Use
  Company Number: PHHY2010US28928

PATIENT
  Sex: Male

DRUGS (14)
  1. GLEEVEC [Suspect]
     Dosage: 400 MG, UNK
     Dates: start: 20090601
  2. GLEEVEC [Suspect]
     Dosage: 100 MG, UNK
  3. GLEEVEC [Suspect]
     Dosage: 400 MG, UNK
  4. LIPITOR [Suspect]
     Dosage: 80 MG, UNK
  5. CARVEDILOL [Concomitant]
  6. FUROSEMIDE [Concomitant]
  7. GLIMEPIRIDE [Concomitant]
  8. METFORMIN HYDROCHLORIDE [Concomitant]
  9. LISINOPRIL [Concomitant]
  10. COUMADIN [Concomitant]
     Dosage: UNK
  11. FOLPLEX VITAMINS [Concomitant]
  12. ASPIRIN [Concomitant]
  13. NITROL [Concomitant]
  14. PRAVASTATIN [Concomitant]

REACTIONS (11)
  - ASCITES [None]
  - BONE PAIN [None]
  - EYE INFLAMMATION [None]
  - FATIGUE [None]
  - HEPATIC ENZYME INCREASED [None]
  - HEPATIC FUNCTION ABNORMAL [None]
  - LACRIMATION INCREASED [None]
  - MUSCLE DISORDER [None]
  - OCULAR HYPERAEMIA [None]
  - RENAL DISORDER [None]
  - SOMNOLENCE [None]
